FAERS Safety Report 8827505 (Version 1)
Quarter: 2012Q4

REPORT INFORMATION
  Report Type: 
  Country: US (occurrence: US)
  Receive Date: 20121008
  Receipt Date: 20121008
  Transmission Date: 20130627
  Serious: Yes (Other)
  Sender: FDA-Public Use
  Company Number: US-BAYER-2012-103373

PATIENT
  Age: 36 Year
  Sex: Female
  Weight: 137.87 kg

DRUGS (6)
  1. YASMIN [Suspect]
  2. WELLBUTRIN [Concomitant]
  3. FLONASE [Concomitant]
  4. VITAMIN E [Concomitant]
  5. ZYBAN [Concomitant]
  6. NICOTROL [Concomitant]

REACTIONS (2)
  - Pulmonary embolism [None]
  - Deep vein thrombosis [None]
